FAERS Safety Report 9759609 (Version 2)
Quarter: 2015Q3

REPORT INFORMATION
  Report Type: Spontaneous
  Country: US (occurrence: US)
  Receive Date: 20131216
  Receipt Date: 20150806
  Transmission Date: 20151125
  Serious: No
  Sender: FDA-Public Use
  Company Number: US-GILEAD-2010-0028242

PATIENT
  Age: 67 Year
  Sex: Female
  Weight: 74.84 kg

DRUGS (16)
  1. FERROUS GLUCONATE [Concomitant]
     Active Substance: FERROUS GLUCONATE
  2. LETAIRIS [Suspect]
     Active Substance: AMBRISENTAN
     Indication: PULMONARY ARTERIAL HYPERTENSION
     Route: 048
     Dates: start: 20090909
  3. VIAGRA [Concomitant]
     Active Substance: SILDENAFIL CITRATE
  4. SIMVASTATIN. [Concomitant]
     Active Substance: SIMVASTATIN
  5. OMEPRAZOLE. [Concomitant]
     Active Substance: OMEPRAZOLE
  6. SODIUM CHLORIDE. [Concomitant]
     Active Substance: SODIUM CHLORIDE
  7. REMODULIN [Concomitant]
     Active Substance: TREPROSTINIL
  8. ADULT ASPIRIN [Concomitant]
  9. BUPROPION. [Concomitant]
     Active Substance: BUPROPION
  10. FUROSEMIDE. [Concomitant]
     Active Substance: FUROSEMIDE
  11. DOCUSATE [Concomitant]
     Active Substance: DOCUSATE
  12. FLUOCINONIDE. [Concomitant]
     Active Substance: FLUOCINONIDE
  13. MULTIVITAMIN [Concomitant]
     Active Substance: VITAMINS
  14. CHLORPHENIRAMINE. [Concomitant]
     Active Substance: CHLORPHENIRAMINE
  15. METROCREAM [Concomitant]
     Active Substance: METRONIDAZOLE
  16. METHOCARB [Concomitant]

REACTIONS (1)
  - Nasal congestion [Unknown]
